FAERS Safety Report 8557160-0 (Version None)
Quarter: 2012Q3

REPORT INFORMATION
  Report Type: 
  Country: None (occurrence: None)
  Receive Date: 20120726
  Receipt Date: 20120726
  Transmission Date: 20120928
  Serious: Yes (Hospitalization)
  Sender: FDA-Public Use
  Company Number: None

PATIENT
  Sex: Male
  Weight: 130.14 kg

DRUGS (1)
  1. ERBITUX [Suspect]
     Dosage: 610 MG

REACTIONS (1)
  - CELLULITIS [None]
